FAERS Safety Report 11915682 (Version 1)
Quarter: 2016Q1

REPORT INFORMATION
  Report Type: Spontaneous
  Country: US (occurrence: None)
  Receive Date: 20160113
  Receipt Date: 20160113
  Transmission Date: 20160526
  Serious: No
  Sender: FDA-Public Use
  Company Number: None

PATIENT
  Age: 3 Year
  Sex: Male
  Weight: 15.42 kg

DRUGS (4)
  1. CHILDRENS TYLENOL [Concomitant]
     Active Substance: ACETAMINOPHEN
  2. CEFDINIR 125/5ML SUS [Suspect]
     Active Substance: CEFDINIR
     Indication: EAR INFECTION
     Route: 048
     Dates: start: 20160105, end: 20160108
  3. CEFDINIR 125/5ML SUS [Suspect]
     Active Substance: CEFDINIR
     Indication: PHARYNGITIS
     Route: 048
     Dates: start: 20160105, end: 20160108
  4. FLINTSTONES MULTI-VITAMIN [Concomitant]

REACTIONS (6)
  - Eye swelling [None]
  - Pyrexia [None]
  - Rash generalised [None]
  - Rash erythematous [None]
  - Therapy cessation [None]
  - Therapy change [None]

NARRATIVE: CASE EVENT DATE: 20160108
